FAERS Safety Report 5522426-5 (Version None)
Quarter: 2007Q4

REPORT INFORMATION
  Report Type: 
  Country: None (occurrence: None)
  Receive Date: 20071120
  Receipt Date: 20071107
  Transmission Date: 20080405
  Serious: Yes (Hospitalization)
  Sender: FDA-Public Use
  Company Number: IE-ELI_LILLY_AND_COMPANY-IE200711002217

PATIENT
  Sex: Male

DRUGS (3)
  1. BYETTA [Suspect]
     Dosage: 5 UG, UNKNOWN
     Dates: start: 20071001, end: 20071101
  2. DIAMICRON [Concomitant]
     Dosage: 60 MG, 2/D
  3. METFORMIN HYDROCHLORIDE [Concomitant]
     Dosage: 2 G, DAILY (1/D)

REACTIONS (2)
  - ABDOMINAL PAIN [None]
  - ABSCESS [None]
